FAERS Safety Report 7860317-5 (Version None)
Quarter: 2011Q4

REPORT INFORMATION
  Report Type: 
  Country: None (occurrence: None)
  Receive Date: 20111026
  Receipt Date: 20111019
  Transmission Date: 20120403
  Serious: Yes (Other)
  Sender: FDA-Public Use
  Company Number: AUR-APL-2011-05537

PATIENT
  Age: 78 Year
  Sex: Female
  Weight: 85.2762 kg

DRUGS (5)
  1. SIMVASTATIN [Concomitant]
  2. ZOLPIDEM [Suspect]
     Indication: CONTINUOUS POSITIVE AIRWAY PRESSURE
     Dosage: (5 MG,1 D), ORAL
     Route: 048
     Dates: start: 20111008
  3. ZOLPIDEM [Suspect]
     Indication: INSOMNIA
     Dosage: (5 MG,1 D), ORAL
     Route: 048
     Dates: start: 20111008
  4. NORVASC [Concomitant]
  5. SYNTHROID [Concomitant]

REACTIONS (3)
  - INITIAL INSOMNIA [None]
  - PRODUCT SUBSTITUTION ISSUE [None]
  - DRUG INEFFECTIVE [None]
